FAERS Safety Report 18695418 (Version 1)
Quarter: 2021Q1

REPORT INFORMATION
  Report Type: Spontaneous
  Country: US (occurrence: US)
  Receive Date: 20210103
  Receipt Date: 20210103
  Transmission Date: 20210419
  Serious: No
  Sender: FDA-Public Use
  Company Number: None

PATIENT
  Age: 67 Year
  Sex: Female
  Weight: 60.75 kg

DRUGS (1)
  1. DILTIAZEM HYDROCHLORIDE EXTENDED RELEASE 180 MG [Suspect]
     Active Substance: DILTIAZEM HYDROCHLORIDE
     Indication: ARTERIOSPASM CORONARY
     Dosage: ?          QUANTITY:1 CAPSULE(S);?
     Route: 048
     Dates: start: 20201226, end: 20210101

REACTIONS (3)
  - Urticaria [None]
  - Pruritus [None]
  - Discomfort [None]

NARRATIVE: CASE EVENT DATE: 20210103
